FAERS Safety Report 15946992 (Version 1)
Quarter: 2019Q1

REPORT INFORMATION
  Report Type: Spontaneous
  Country: PR (occurrence: US)
  Receive Date: 20190212
  Receipt Date: 20190212
  Transmission Date: 20190417
  Serious: Yes (Other)
  Sender: FDA-Public Use
  Company Number: PR-VIIV HEALTHCARE LIMITED-US2019GSK023326

PATIENT
  Age: 22 Year
  Sex: Female

DRUGS (1)
  1. TIVICAY [Suspect]
     Active Substance: DOLUTEGRAVIR SODIUM
     Indication: HIV INFECTION
     Dosage: 50 MG, QD

REACTIONS (2)
  - Viral load increased [Unknown]
  - Hepatitis C [Unknown]
